FAERS Safety Report 20838688 (Version 1)
Quarter: 2022Q2

REPORT INFORMATION
  Report Type: Spontaneous
  Country: US (occurrence: None)
  Receive Date: 20220516
  Receipt Date: 20220516
  Transmission Date: 20220721
  Serious: No
  Sender: FDA-Public Use
  Company Number: None

PATIENT
  Age: 40 Year
  Sex: Female
  Weight: 83.25 kg

DRUGS (4)
  1. VYEPTI [Suspect]
     Active Substance: EPTINEZUMAB-JJMR
     Indication: Migraine prophylaxis
     Dates: start: 20220427
  2. IMITREX [Concomitant]
     Active Substance: SUMATRIPTAN SUCCINATE
  3. NAPROXEN [Concomitant]
     Active Substance: NAPROXEN
  4. Ashwanghanda [Concomitant]

REACTIONS (5)
  - Respiratory tract congestion [None]
  - Throat tightness [None]
  - Tongue disorder [None]
  - Paraesthesia oral [None]
  - Paraesthesia oral [None]

NARRATIVE: CASE EVENT DATE: 20220428
